FAERS Safety Report 4700086-0 (Version None)
Quarter: 2005Q2

REPORT INFORMATION
  Report Type: 
  Country: None (occurrence: None)
  Receive Date: 20050623
  Receipt Date: 20050609
  Transmission Date: 20051028
  Serious: Yes (Hospitalization)
  Sender: FDA-Public Use
  Company Number: 200415711BCC

PATIENT
  Age: 73 Year
  Sex: Male
  Weight: 97.0698 kg

DRUGS (10)
  1. ALEVE [Suspect]
     Indication: DEMENTIA ALZHEIMER'S TYPE
     Dosage: BID, ORAL
     Route: 048
     Dates: start: 20040202, end: 20041021
  2. ALEVE [Suspect]
     Indication: PROPHYLAXIS
     Dosage: BID, ORAL
     Route: 048
     Dates: start: 20040202, end: 20041021
  3. ASPIRIN [Concomitant]
  4. GLUCOSAMINE [Concomitant]
  5. CHONDROITIN [Concomitant]
  6. MULTI-VITAMIN [Concomitant]
  7. MULTIMINERAL [Concomitant]
  8. SAW PALMETTO W/PYGEUM [Concomitant]
  9. MAGNESIUM/POTASSIUM/ASPOROTATES W/BROMELAIN [Concomitant]
  10. VIAGRA [Concomitant]

REACTIONS (4)
  - BLOOD PRESSURE SYSTOLIC INCREASED [None]
  - CORONARY ARTERY OCCLUSION [None]
  - GASTROOESOPHAGEAL REFLUX DISEASE [None]
  - PARAESTHESIA [None]
